FAERS Safety Report 16884485 (Version 1)
Quarter: 2019Q4

REPORT INFORMATION
  Report Type: Spontaneous
  Country: CN (occurrence: CN)
  Receive Date: 20191004
  Receipt Date: 20191004
  Transmission Date: 20200122
  Serious: Yes (Other)
  Sender: FDA-Public Use
  Company Number: CN-BAXTER-2019BAX019378

PATIENT
  Age: 56 Year
  Sex: Female
  Weight: 40 kg

DRUGS (14)
  1. 0.9% SODIUM CHLORIDE INJECTION [Suspect]
     Active Substance: SODIUM CHLORIDE
     Dosage: DOSE RE-INTRODUCTION, DOXORUBICIN HYDROCHLORIDE  + 0.9% NS
     Route: 041
     Dates: start: 201909
  2. DOXORUBICIN HYDROCHLORIDE. [Suspect]
     Active Substance: DOXORUBICIN HYDROCHLORIDE
     Dosage: DOSE RE-INTRODUCTION, DOXORUBICIN HYDROCHLORIDE + 0.9% NS
     Route: 041
     Dates: start: 201909
  3. ENDOXAN [Suspect]
     Active Substance: CYCLOPHOSPHAMIDE
     Dosage: DOSE RE-INTRODUCTION, ENDOXAN + 0.9% SODIUM CHLORIDE [NS]
     Route: 041
     Dates: start: 201909
  4. 0.9% SODIUM CHLORIDE INJECTION [Suspect]
     Active Substance: SODIUM CHLORIDE
     Indication: MEDICATION DILUTION
     Dosage: ENDOXAN 0.9 G + 0.9% SODIUM CHLORIDE [NS] 40 ML
     Route: 041
     Dates: start: 20190903, end: 20190903
  5. 0.9% SODIUM CHLORIDE INJECTION [Suspect]
     Active Substance: SODIUM CHLORIDE
     Dosage: DOXORUBICIN HYDROCHLORIDE 60 MG + 0.9% NS 40 ML
     Route: 041
     Dates: start: 20190903, end: 20190903
  6. 0.9% SODIUM CHLORIDE INJECTION [Suspect]
     Active Substance: SODIUM CHLORIDE
     Dosage: VINCRISTINE SULFATE 1.8 MG + 0.9% NS 40 ML
     Route: 041
     Dates: start: 20190903, end: 20190903
  7. ENDOXAN [Suspect]
     Active Substance: CYCLOPHOSPHAMIDE
     Indication: B-CELL LYMPHOMA STAGE IV
     Dosage: ENDOXAN 0.9 G + 0.9% SODIUM CHLORIDE [NS] 40 ML
     Route: 041
     Dates: start: 20190903, end: 20190903
  8. DOXORUBICIN HYDROCHLORIDE. [Suspect]
     Active Substance: DOXORUBICIN HYDROCHLORIDE
     Indication: B-CELL LYMPHOMA STAGE IV
     Dosage: DOXORUBICIN HYDROCHLORIDE 60 MG + 0.9% NS 40 ML
     Route: 041
     Dates: start: 20190903, end: 20190903
  9. VINCRISTINE SULFATE. [Suspect]
     Active Substance: VINCRISTINE SULFATE
     Indication: B-CELL LYMPHOMA STAGE IV
     Dosage: VINCRISTINE SULFATE 1.8 MG + 0.9% NS 40 ML
     Route: 041
     Dates: start: 20190903, end: 20190903
  10. 0.9% SODIUM CHLORIDE INJECTION [Suspect]
     Active Substance: SODIUM CHLORIDE
     Dosage: DOSE RE-INTRODUCTION, ENDOXAN + 0.9% NS
     Route: 041
     Dates: start: 201909
  11. 0.9% SODIUM CHLORIDE INJECTION [Suspect]
     Active Substance: SODIUM CHLORIDE
     Dosage: DOSE RE-INTRODUCTION, VINCRISTINE SULFATE + 0.9% NS
     Route: 041
     Dates: start: 201909
  12. VINCRISTINE SULFATE. [Suspect]
     Active Substance: VINCRISTINE SULFATE
     Dosage: DOSE RE-INTRODUCTION, VINCRISTINE SULFATE + 0.9% NS
     Route: 041
     Dates: start: 201909
  13. PREDNISONE ACETATE [Suspect]
     Active Substance: PREDNISONE ACETATE
     Indication: B-CELL LYMPHOMA STAGE IV
     Dosage: DOSAGE FORM: TABLET
     Route: 048
     Dates: start: 20190903, end: 20190907
  14. PREDNISONE ACETATE [Suspect]
     Active Substance: PREDNISONE ACETATE
     Dosage: DOSAGE FORM: TABLET, DOSE RE-INTRODUCTION
     Route: 048
     Dates: start: 201909

REACTIONS (2)
  - Leukopenia [Recovered/Resolved]
  - Neutropenia [Recovered/Resolved]

NARRATIVE: CASE EVENT DATE: 20190921
